FAERS Safety Report 4802760-4 (Version None)
Quarter: 2005Q4

REPORT INFORMATION
  Report Type: 
  Country: None (occurrence: None)
  Receive Date: 20051013
  Receipt Date: 20050928
  Transmission Date: 20060501
  Serious: Yes (Other)
  Sender: FDA-Public Use
  Company Number: 200509IM000563

PATIENT
  Sex: 0

DRUGS (1)
  1. INFERGEN [Suspect]
     Dates: end: 20050901

REACTIONS (1)
  - DEAFNESS UNILATERAL [None]
